FAERS Safety Report 8370070-7 (Version None)
Quarter: 2012Q2

REPORT INFORMATION
  Report Type: 
  Country: None (occurrence: None)
  Receive Date: 20120518
  Receipt Date: 20120511
  Transmission Date: 20120825
  Serious: Yes (Other)
  Sender: FDA-Public Use
  Company Number: FR-UCBSA-057266

PATIENT
  Age: 73 Year
  Sex: Male

DRUGS (1)
  1. KEPPRA [Suspect]
     Route: 048
     Dates: start: 20120213, end: 20120101

REACTIONS (3)
  - APRAXIA [None]
  - VERTIGO [None]
  - FEELING ABNORMAL [None]
